FAERS Safety Report 14699237 (Version 2)
Quarter: 2018Q3

REPORT INFORMATION
  Report Type: Spontaneous
  Country: US (occurrence: US)
  Receive Date: 20180330
  Receipt Date: 20180706
  Transmission Date: 20181010
  Serious: Yes (Other)
  Sender: FDA-Public Use
  Company Number: US-PFIZER INC-2018122017

PATIENT
  Age: 13 Year
  Sex: Female
  Weight: 52.16 kg

DRUGS (1)
  1. DIMETAPP [Suspect]
     Active Substance: BROMPHENIRAMINE\PSEUDOEPHEDRINE
     Indication: NASOPHARYNGITIS
     Dosage: 20 ML, SINGLE
     Route: 048
     Dates: start: 201803, end: 201803

REACTIONS (4)
  - Hallucination [Recovered/Resolved]
  - Nightmare [Recovered/Resolved]
  - Panic disorder [Unknown]
  - Heart rate abnormal [Unknown]

NARRATIVE: CASE EVENT DATE: 201803
